FAERS Safety Report 4320447-1 (Version None)
Quarter: 2004Q1

REPORT INFORMATION
  Report Type: 
  Country: None (occurrence: None)
  Receive Date: 20040316
  Receipt Date: 20031024
  Transmission Date: 20041129
  Serious: Yes (Congenital Anomaly)
  Sender: FDA-Public Use
  Company Number: 306041

PATIENT
  Sex: Male
  Weight: 3.5 kg

DRUGS (3)
  1. ACCUTANE [Suspect]
     Indication: ACNE
     Dosage: 20 MG 1 PER DAY ORAL
     Route: 048
     Dates: start: 20000502, end: 20010715
  2. . [Concomitant]
  3. ORTHO TRI-CYCLEN [Concomitant]

REACTIONS (21)
  - ABDOMINAL PAIN [None]
  - BLOOD CREATININE INCREASED [None]
  - BLOOD GLUCOSE INCREASED [None]
  - BLOOD POTASSIUM INCREASED [None]
  - BLOOD UREA INCREASED [None]
  - CONGENITAL BLADDER ANOMALY [None]
  - CONGENITAL HYDRONEPHROSIS [None]
  - CONGENITAL MEGAURETER [None]
  - CONGENITAL NYSTAGMUS [None]
  - COUGH [None]
  - CRYING [None]
  - DRUG EXPOSURE DURING PREGNANCY [None]
  - ECZEMA [None]
  - FLATULENCE [None]
  - JAUNDICE NEONATAL [None]
  - NEONATAL DISORDER [None]
  - PAIN [None]
  - POLYHYDRAMNIOS [None]
  - PYREXIA [None]
  - RASH [None]
  - RASH MACULAR [None]
